FAERS Safety Report 19197265 (Version 2)
Quarter: 2021Q2

REPORT INFORMATION
  Report Type: Spontaneous
  Country: US (occurrence: US)
  Receive Date: 20210429
  Receipt Date: 20210622
  Transmission Date: 20210717
  Serious: Yes (Hospitalization)
  Sender: FDA-Public Use
  Company Number: US-BAYER-2021-129017

PATIENT
  Sex: Female
  Weight: 76.64 kg

DRUGS (1)
  1. CIPRO [Suspect]
     Active Substance: CIPROFLOXACIN HYDROCHLORIDE
     Dosage: UNK
     Dates: start: 2017, end: 2017

REACTIONS (4)
  - Ureteric injury [None]
  - Diarrhoea [None]
  - Clostridium difficile infection [None]
  - Abscess intestinal [None]

NARRATIVE: CASE EVENT DATE: 2017
